FAERS Safety Report 10262859 (Version 2)
Quarter: 2014Q2

REPORT INFORMATION
  Report Type: Report from Study
  Country: US (occurrence: US)
  Receive Date: 20140626
  Receipt Date: 20140626
  Transmission Date: 20141212
  Serious: No
  Sender: FDA-Public Use
  Company Number: US-MYLANLABS-2013S1020124

PATIENT
  Age: 44 Year
  Sex: Male

DRUGS (5)
  1. CLOZAPINE TABLETS [Suspect]
     Route: 048
     Dates: end: 20130906
  2. CLOZAPINE TABLETS [Suspect]
     Route: 048
     Dates: end: 20130906
  3. WELLBUTRIN SR [Concomitant]
  4. FLUPHENAZINE [Concomitant]
  5. LITHIUM [Concomitant]
     Dosage: 300MG QAM, 600MG QHS

REACTIONS (3)
  - Granulocytopenia [Recovered/Resolved]
  - Leukopenia [Recovered/Resolved]
  - Treatment noncompliance [Recovered/Resolved]
